FAERS Safety Report 12835930 (Version 1)
Quarter: 2016Q4

REPORT INFORMATION
  Report Type: Spontaneous
  Country: US (occurrence: US)
  Receive Date: 20161011
  Receipt Date: 20161011
  Transmission Date: 20170207
  Serious: No
  Sender: FDA-Public Use
  Company Number: US-ENDO PHARMACEUTICALS INC.-2016-004845

PATIENT
  Age: 77 Year
  Sex: Female

DRUGS (1)
  1. ALPRAZOLAM IR TABLETS 0.5MG [Suspect]
     Active Substance: ALPRAZOLAM
     Indication: ANXIETY
     Route: 065
     Dates: start: 201606, end: 201606

REACTIONS (2)
  - Psychomotor hyperactivity [Unknown]
  - Insomnia [Unknown]

NARRATIVE: CASE EVENT DATE: 201606
